FAERS Safety Report 16066875 (Version 2)
Quarter: 2020Q2

REPORT INFORMATION
  Report Type: Report from Study
  Country: FR (occurrence: FR)
  Receive Date: 20190313
  Receipt Date: 20200407
  Transmission Date: 20200713
  Serious: Yes (Life-Threatening)
  Sender: FDA-Public Use
  Company Number: FR-PFIZER INC-2019109887

PATIENT
  Age: 57 Year
  Sex: Male
  Weight: 71 kg

DRUGS (10)
  1. ARACYTINE [Suspect]
     Active Substance: CYTARABINE
     Dosage: 5.6 G, UNK
     Route: 042
     Dates: start: 20190109, end: 20190110
  2. METHOTREXATE. [Suspect]
     Active Substance: METHOTREXATE
     Dosage: 1 G, UNK
     Route: 042
     Dates: start: 20190107, end: 20190108
  3. ZARZIO [Concomitant]
     Active Substance: FILGRASTIM
     Dosage: UNK
     Dates: start: 20190111
  4. TAHOR [Concomitant]
     Active Substance: ATORVASTATIN CALCIUM
     Dosage: UNK
  5. BACTRIM [Concomitant]
     Active Substance: SULFAMETHOXAZOLE\TRIMETHOPRIM
     Dosage: UNK
     Dates: start: 20181107
  6. AMN-107 [Suspect]
     Active Substance: NILOTINIB
     Indication: ACUTE LYMPHOCYTIC LEUKAEMIA
     Dosage: 800 MG, UNK
     Route: 048
     Dates: start: 20181110
  7. ZENRIZ [Concomitant]
     Dosage: UNK
     Dates: start: 20151107
  8. LANTUS [Concomitant]
     Active Substance: INSULIN GLARGINE
     Dosage: UNK
  9. KARDAK [Concomitant]
     Dosage: UNK
     Dates: start: 20190111
  10. ARACYTINE [Suspect]
     Active Substance: CYTARABINE
     Dosage: 5.6 G, UNK
     Route: 042
     Dates: start: 20190109, end: 20190110

REACTIONS (2)
  - Lung disorder [Unknown]
  - Febrile neutropenia [Unknown]

NARRATIVE: CASE EVENT DATE: 20190222
